FAERS Safety Report 8183594-2 (Version None)
Quarter: 2012Q1

REPORT INFORMATION
  Report Type: 
  Country: None (occurrence: None)
  Receive Date: 20120305
  Receipt Date: 20120223
  Transmission Date: 20120608
  Serious: Yes (Other)
  Sender: FDA-Public Use
  Company Number: US-JNJFOC-20120213005

PATIENT
  Sex: Female

DRUGS (14)
  1. PROPRANOLOL [Concomitant]
     Dosage: 30 DAY
     Route: 065
  2. DURAGESIC-100 [Suspect]
     Route: 065
  3. MORPHINE SULFATE [Concomitant]
     Route: 065
  4. LOVASTATIN [Concomitant]
     Dosage: 30 DAYS
     Route: 065
  5. RANITIDINE [Concomitant]
     Dosage: 30 DAYS
     Route: 065
  6. DURAGESIC-100 [Suspect]
     Route: 065
  7. CLEOCIN HYDROCHLORIDE [Concomitant]
     Dosage: 30 DAYS
     Route: 065
  8. MORPHINE SULFATE [Concomitant]
     Route: 065
  9. DURAGESIC-100 [Suspect]
     Indication: PAIN
     Route: 065
  10. DURAGESIC-100 [Suspect]
     Route: 065
  11. COUMADIN [Concomitant]
     Dosage: 30 DAYS
     Route: 065
  12. DURAGESIC-100 [Suspect]
     Route: 065
  13. DURAGESIC-100 [Suspect]
     Route: 065
  14. CYMBALTA [Concomitant]
     Dosage: 30 DAYS
     Route: 065

REACTIONS (9)
  - DRUG INEFFECTIVE [None]
  - TREATMENT NONCOMPLIANCE [None]
  - INAPPROPRIATE SCHEDULE OF DRUG ADMINISTRATION [None]
  - FALL [None]
  - OEDEMA PERIPHERAL [None]
  - NAUSEA [None]
  - GAIT DISTURBANCE [None]
  - PNEUMONIA [None]
  - OVARIAN HAEMORRHAGE [None]
